FAERS Safety Report 19940381 (Version 1)
Quarter: 2021Q4

REPORT INFORMATION
  Report Type: Spontaneous
  Country: US (occurrence: US)
  Receive Date: 20211011
  Receipt Date: 20211011
  Transmission Date: 20220303
  Serious: No
  Sender: FDA-Public Use
  Company Number: US-BAYER-2021A222725

PATIENT
  Sex: Female

DRUGS (18)
  1. BETASERON [Suspect]
     Active Substance: INTERFERON BETA-1B
     Indication: Multiple sclerosis
     Dosage: UNK
  2. LORATADINE [Concomitant]
     Active Substance: LORATADINE
  3. MINERALS\VITAMINS [Concomitant]
     Active Substance: MINERALS\VITAMINS
  4. SYNTHROID [Concomitant]
     Active Substance: LEVOTHYROXINE SODIUM
  5. ADENOSINE [Concomitant]
     Active Substance: ADENOSINE
  6. MONUROL [Concomitant]
     Active Substance: FOSFOMYCIN TROMETHAMINE
  7. FLOVENT [Concomitant]
     Active Substance: FLUTICASONE PROPIONATE
  8. OMEPRAZOLE [Concomitant]
     Active Substance: OMEPRAZOLE
  9. MOMETASONE FUROATE [Concomitant]
     Active Substance: MOMETASONE FUROATE
  10. ALPHA LIPOIC ACID [Concomitant]
     Active Substance: .ALPHA.-LIPOIC ACID
  11. EPIPEN [Concomitant]
     Active Substance: EPINEPHRINE
  12. OXYMETAZOLINE HYDROCHLORIDE [Concomitant]
     Active Substance: OXYMETAZOLINE HYDROCHLORIDE
  13. LETROZOLE [Concomitant]
     Active Substance: LETROZOLE
  14. FENOFIBRATE [Concomitant]
     Active Substance: FENOFIBRATE
  15. VITAMIN D NOS [Concomitant]
     Active Substance: VITAMIN D NOS
  16. CALCIUM CITRATE;VITAMIN D NOS [Concomitant]
  17. VITAMIN B12 [Concomitant]
     Active Substance: CYANOCOBALAMIN
  18. VITAMIN D3 [Concomitant]
     Active Substance: CHOLECALCIFEROL

REACTIONS (3)
  - Chills [Unknown]
  - Influenza like illness [Unknown]
  - Tremor [Unknown]
